FAERS Safety Report 9431253 (Version 1)
Quarter: 2013Q3

REPORT INFORMATION
  Report Type: Spontaneous
  Country: GB (occurrence: GB)
  Receive Date: 20130730
  Receipt Date: 20130730
  Transmission Date: 20140515
  Serious: Yes (Hospitalization, Other)
  Sender: FDA-Public Use
  Company Number: GB-MYLANLABS-2013S1015825

PATIENT
  Age: 48 Year
  Sex: Female

DRUGS (1)
  1. FLUOXETINE [Suspect]
     Indication: DEPRESSION
     Route: 048
     Dates: start: 1997

REACTIONS (2)
  - Gastric cancer stage IV [Unknown]
  - Depressed mood [Unknown]
